FAERS Safety Report 8084195-7 (Version None)
Quarter: 2012Q1

REPORT INFORMATION
  Report Type: 
  Country: None (occurrence: None)
  Receive Date: 20120128
  Receipt Date: 20110119
  Transmission Date: 20120608
  Serious: No
  Sender: FDA-Public Use
  Company Number: US-ABBOTT-11P-163-0699534-00

PATIENT
  Sex: Female
  Weight: 67.646 kg

DRUGS (12)
  1. IMODIUM [Concomitant]
     Indication: CROHN'S DISEASE
  2. IRON [Concomitant]
     Indication: ANAEMIA
  3. MAGNESIUM [Concomitant]
     Indication: MINERAL SUPPLEMENTATION
  4. DEPHONOX ATROPINE [Concomitant]
     Indication: CROHN'S DISEASE
  5. HUMIRA [Suspect]
     Indication: CROHN'S DISEASE
     Dates: start: 20090101
  6. QUESTRAM [Concomitant]
     Indication: CROHN'S DISEASE
  7. LORTAB [Concomitant]
     Indication: PAIN
  8. LOPERIMIDE [Concomitant]
     Indication: CROHN'S DISEASE
  9. LOMOTIL [Concomitant]
     Indication: CROHN'S DISEASE
  10. VERAPAMIL [Concomitant]
     Indication: HYPERTENSION
  11. VITAMIN TAB [Concomitant]
     Indication: VITAMIN SUPPLEMENTATION
  12. ATARAX [Concomitant]
     Indication: PRURITUS

REACTIONS (4)
  - DERMATITIS [None]
  - RASH [None]
  - HYPERTENSION [None]
  - ENTEROSTOMY CLOSURE [None]
